FAERS Safety Report 19604804 (Version 1)
Quarter: 2021Q3

REPORT INFORMATION
  Report Type: Spontaneous
  Country: US (occurrence: US)
  Receive Date: 20210723
  Receipt Date: 20210723
  Transmission Date: 20211014
  Serious: No
  Sender: FDA-Public Use
  Company Number: US-MSNLABS-2021MSNSPO00251

PATIENT

DRUGS (1)
  1. FOSAPREPITANT FOR INJECTION 150MG/VIAL [Suspect]
     Active Substance: FOSAPREPITANT
     Indication: PRODUCT USED FOR UNKNOWN INDICATION
     Dosage: SINGLE DOSE VIAL, 1 VIAL
     Route: 065

REACTIONS (1)
  - Off label use [Unknown]
